FAERS Safety Report 6225435-6 (Version None)
Quarter: 2009Q2

REPORT INFORMATION
  Report Type: 
  Country: None (occurrence: None)
  Receive Date: 20090612
  Receipt Date: 20090416
  Transmission Date: 20091009
  Serious: No
  Sender: FDA-Public Use
  Company Number: US-ABBOTT-09P-163-0569013-00

PATIENT
  Sex: Male
  Weight: 71.732 kg

DRUGS (3)
  1. HUMIRA [Suspect]
     Indication: PSORIATIC ARTHROPATHY
     Route: 058
     Dates: start: 20050101
  2. LISINOPRIL [Concomitant]
     Indication: HYPERTENSION
  3. RED YEAST RICE [Concomitant]
     Indication: BLOOD CHOLESTEROL INCREASED

REACTIONS (2)
  - PSORIATIC ARTHROPATHY [None]
  - SWELLING [None]
